FAERS Safety Report 24891537 (Version 2)
Quarter: 2025Q1

REPORT INFORMATION
  Report Type: Spontaneous
  Country: AU (occurrence: AU)
  Receive Date: 20250127
  Receipt Date: 20250313
  Transmission Date: 20250409
  Serious: No
  Sender: PURDUE
  Company Number: AU-MLMSERVICE-20250115-PI350465-00252-4

PATIENT
  Sex: Male

DRUGS (1)
  1. OXYCODONE HYDROCHLORIDE [Suspect]
     Active Substance: OXYCODONE HYDROCHLORIDE
     Indication: Cancer pain
     Dosage: OXYCODONE MODIFIED RELEASE 100 MG TWO TIMES PER DAY, OXYCODONE MODIFIED RELEASE AND IMMEDIATE RELEAS
     Route: 048

REACTIONS (3)
  - Myoclonus [Recovering/Resolving]
  - Somnolence [Recovering/Resolving]
  - Confusional state [Recovering/Resolving]
